FAERS Safety Report 5395877-X (Version None)
Quarter: 2007Q3

REPORT INFORMATION
  Report Type: 
  Country: None (occurrence: None)
  Receive Date: 20070718
  Receipt Date: 20070503
  Transmission Date: 20080115
  Serious: Yes (Hospitalization, Other)
  Sender: FDA-Public Use
  Company Number: 2006133856

PATIENT
  Age: 41 Year
  Sex: Male

DRUGS (2)
  1. CELEBREX [Suspect]
     Indication: INTERVERTEBRAL DISC DEGENERATION
     Dosage: 400 MG (200 MG, 2 IN 1 D)
     Dates: start: 19990228, end: 19990711
  2. VIOXX [Suspect]
     Dates: start: 19990701

REACTIONS (1)
  - MYOCARDIAL INFARCTION [None]
